FAERS Safety Report 16149047 (Version 2)
Quarter: 2019Q2

REPORT INFORMATION
  Report Type: Spontaneous
  Country: US (occurrence: US)
  Receive Date: 20190402
  Receipt Date: 20190418
  Transmission Date: 20190711
  Serious: Yes (Hospitalization)
  Sender: FDA-Public Use
  Company Number: US-ADAMAS PHARMA, LLC-2019ADA00566

PATIENT
  Sex: Male

DRUGS (9)
  1. ATENOLOL. [Concomitant]
     Active Substance: ATENOLOL
  2. ENTACAPONE. [Concomitant]
     Active Substance: ENTACAPONE
  3. UNSPECIFIED LEVODOPA-BASED THERAPY [Concomitant]
  4. GOCOVRI [Suspect]
     Active Substance: AMANTADINE
     Dosage: WEANED OFF
     Route: 048
     Dates: start: 201903, end: 201903
  5. ASPIRIN. [Concomitant]
     Active Substance: ASPIRIN
  6. GOCOVRI [Suspect]
     Active Substance: AMANTADINE
     Indication: DYSKINESIA
     Dosage: 274 MG, 1X/DAY AT BEDTIME
     Route: 048
     Dates: start: 20181119, end: 201903
  7. CARBIDOPA. [Concomitant]
     Active Substance: CARBIDOPA
  8. ATORVASTATIN [Concomitant]
     Active Substance: ATORVASTATIN
  9. CELECOXIB. [Concomitant]
     Active Substance: CELECOXIB

REACTIONS (2)
  - Hallucination [Recovered/Resolved]
  - Seizure [Recovered/Resolved]
